FAERS Safety Report 14352933 (Version 7)
Quarter: 2018Q2

REPORT INFORMATION
  Report Type: Report from Study
  Country: US (occurrence: US)
  Receive Date: 20180104
  Receipt Date: 20180501
  Transmission Date: 20180711
  Serious: Yes (Other)
  Sender: FDA-Public Use
  Company Number: US-MALLINCKRODT-T201704877

PATIENT
  Age: 79 Year
  Sex: Female

DRUGS (6)
  1. PREDNISONE. [Suspect]
     Active Substance: PREDNISONE
     Indication: PRODUCT USED FOR UNKNOWN INDICATION
     Dosage: UNK
     Route: 065
  2. LEVATOL [Concomitant]
     Active Substance: PENBUTOLOL SULFATE
     Indication: BLOOD CHOLESTEROL ABNORMAL
     Dosage: UNK
     Route: 065
  3. REPOSITORY CORTICOTROPIN INJECTION [Suspect]
     Active Substance: CORTICOTROPIN
     Dosage: 80 UNITS / 1 ML, EVERY 3 DAYS / EVERY 72 HOURS
     Route: 065
     Dates: end: 20180105
  4. TAMOXIFEN [Concomitant]
     Active Substance: TAMOXIFEN
     Indication: BREAST CANCER
     Dosage: UNK
     Route: 065
  5. REPOSITORY CORTICOTROPIN INJECTION [Suspect]
     Active Substance: CORTICOTROPIN
     Indication: KERATITIS
     Dosage: 80 UNITS/1 ML, EVERY 3 DAYS/EVERY 72 HOURS
     Route: 065
     Dates: start: 20171114
  6. ASPIRIN. [Concomitant]
     Active Substance: ASPIRIN
     Indication: PRODUCT USED FOR UNKNOWN INDICATION
     Dosage: 81 MG, ONCE A DAY
     Route: 065

REACTIONS (30)
  - Renal impairment [Unknown]
  - Chest discomfort [Recovering/Resolving]
  - Nasopharyngitis [Recovered/Resolved]
  - Muscular weakness [Recovering/Resolving]
  - Drug dose omission [Recovering/Resolving]
  - Gastric polyps [Unknown]
  - Swelling face [Not Recovered/Not Resolved]
  - Visual impairment [Not Recovered/Not Resolved]
  - Dry eye [Recovering/Resolving]
  - Adrenal gland cancer [Unknown]
  - Bronchitis [Recovered/Resolved]
  - Impaired driving ability [Unknown]
  - Dyspnoea [Recovering/Resolving]
  - Intraocular pressure increased [Unknown]
  - Malaise [Not Recovered/Not Resolved]
  - Pollakiuria [Unknown]
  - Dizziness [Unknown]
  - Eye infection [Unknown]
  - Cystitis [Unknown]
  - Aneurysm [Unknown]
  - Urine output increased [Recovered/Resolved]
  - Hyperglycaemia [Unknown]
  - Headache [Unknown]
  - Kidney infection [Recovered/Resolved]
  - Blood pressure fluctuation [Not Recovered/Not Resolved]
  - Pancreatic pseudocyst [Unknown]
  - Pain [Unknown]
  - Hyperlipidaemia [Unknown]
  - Eyelid disorder [Unknown]
  - Fatigue [Recovering/Resolving]

NARRATIVE: CASE EVENT DATE: 20171119
